FAERS Safety Report 5546714-1 (Version None)
Quarter: 2007Q4

REPORT INFORMATION
  Report Type: 
  Country: None (occurrence: None)
  Receive Date: 20071211
  Receipt Date: 20071203
  Transmission Date: 20080405
  Serious: Yes (Life-Threatening)
  Sender: FDA-Public Use
  Company Number: CN-JNJFOC-20070301236

PATIENT
  Sex: Female
  Weight: 68 kg

DRUGS (7)
  1. YONDELIS [Suspect]
     Route: 042
  2. YONDELIS [Suspect]
     Indication: OVARIAN CANCER METASTATIC
     Dosage: ADMINISTERED OVER A PERIOD OF 3 HOURS
     Route: 042
  3. DOXIL [Suspect]
     Route: 042
  4. DOXIL [Suspect]
     Indication: OVARIAN CANCER METASTATIC
     Route: 042
  5. ODANSETRON [Concomitant]
     Route: 048
  6. NEUPOGEN [Concomitant]
     Route: 042
  7. NEUPOGEN [Concomitant]
     Route: 042

REACTIONS (5)
  - ALANINE AMINOTRANSFERASE INCREASED [None]
  - ASPARTATE AMINOTRANSFERASE INCREASED [None]
  - BONE MARROW FAILURE [None]
  - LEUKOPENIA [None]
  - NEUTROPHIL COUNT DECREASED [None]
